FAERS Safety Report 7295149 (Version 2)
Quarter: 2014Q2

REPORT INFORMATION
  Report Type: Spontaneous
  Country: None (occurrence: None)
  Receive Date: 20100204
  Receipt Date: 20140416
  Transmission Date: 20141212
  Serious: Yes (Hospitalization, Other)
  Sender: FDA-Public Use
  Company Number: AUR-APL-2010-00193

PATIENT
  Age: 76 Year
  Sex: Female

DRUGS (6)
  1. ALENDRONIC ACID [Suspect]
     Indication: BONE LOSS
     Route: 048
     Dates: start: 199908
  2. ALENDRONIC ACID [Suspect]
     Route: 048
     Dates: start: 199908
  3. PREDNISONE [Suspect]
     Indication: PRODUCT USED FOR UNKNOWN INDICATION
     Dates: start: 199603
  4. METHOTREXATE [Concomitant]
     Indication: RHEUMATOID ARTHRITIS
     Dosage: 15 MG - ONCE WEEKLY
  5. OMEPRAZOLE (OMEPRAZOLE) (OMEPRAZOLE) [Concomitant]
  6. DICLOFENAC (DICLOFENAC) [Concomitant]

REACTIONS (3)
  - Femur fracture [None]
  - Fracture delayed union [None]
  - Bone formation decreased [None]
